FAERS Safety Report 5284292-5 (Version None)
Quarter: 2007Q2

REPORT INFORMATION
  Report Type: 
  Country: None (occurrence: None)
  Receive Date: 20070403
  Receipt Date: 20070322
  Transmission Date: 20071010
  Serious: Yes (Other)
  Sender: FDA-Public Use
  Company Number: DEWYE038215MAR07

PATIENT
  Sex: Female
  Weight: 60 kg

DRUGS (6)
  1. ENBREL [Suspect]
     Indication: RHEUMATOID ARTHRITIS
     Route: 058
     Dates: start: 20050101
  2. ENBREL [Suspect]
     Indication: ANKYLOSING SPONDYLITIS
  3. LANTAREL [Suspect]
     Indication: RHEUMATOID ARTHRITIS
     Dosage: UNKNOWN
     Route: 058
     Dates: start: 20000101
  4. LANTAREL [Suspect]
     Indication: ANKYLOSING SPONDYLITIS
  5. KINERET [Suspect]
     Indication: RHEUMATOID ARTHRITIS
     Dosage: UNKNOWN
     Route: 058
     Dates: start: 20030101, end: 20050101
  6. GLUCOCORTICOIDS [Concomitant]

REACTIONS (7)
  - DERMATOMYOSITIS [None]
  - GLOMERULONEPHRITIS [None]
  - IRITIS [None]
  - LEUKOPENIA [None]
  - NAUSEA [None]
  - RAYNAUD'S PHENOMENON [None]
  - SKIN NECROSIS [None]
